FAERS Safety Report 21287037 (Version 3)
Quarter: 2022Q4

REPORT INFORMATION
  Report Type: Report from Study
  Country: AU (occurrence: AU)
  Receive Date: 20220902
  Receipt Date: 20221028
  Transmission Date: 20230113
  Serious: Yes (Disabling, Other)
  Sender: FDA-Public Use
  Company Number: AU-KOREA IPSEN Pharma-2022-02229

PATIENT
  Age: 76 Year
  Sex: Female

DRUGS (18)
  1. LANREOTIDE ACETATE [Suspect]
     Active Substance: LANREOTIDE ACETATE
     Indication: Carcinoid syndrome
     Dosage: DRUG START DATE-A YEAR AND A HALF/MORE THAN 12 MONTHS AGO
     Route: 058
  2. LANREOTIDE ACETATE [Suspect]
     Active Substance: LANREOTIDE ACETATE
     Dosage: 120 MG EVERY 28 DAYS
     Route: 058
  3. PFIZER [Concomitant]
     Dates: start: 202201
  4. INSULIN NOS [Concomitant]
     Active Substance: INSULIN NOS
  5. AMITRIPTYLINE HYDROCHLORIDE [Concomitant]
     Active Substance: AMITRIPTYLINE HYDROCHLORIDE
  6. VITAMIN D3 [Concomitant]
     Active Substance: CHOLECALCIFEROL
  7. METEX XR [Concomitant]
  8. ELAXINE SR [Concomitant]
  9. EZEMICHOL [Concomitant]
  10. AVSARTAN [Concomitant]
  11. FENOFIBRATE [Concomitant]
     Active Substance: FENOFIBRATE
  12. PLIDOGREL [Concomitant]
  13. TENSIG [Concomitant]
  14. DILTIAZEM HYDROCHLORIDE [Concomitant]
     Active Substance: DILTIAZEM HYDROCHLORIDE
  15. CEPHALEXIN [Concomitant]
     Active Substance: CEPHALEXIN
  16. EUTROXSIG [Concomitant]
     Active Substance: LEVOTHYROXINE SODIUM
  17. PANTOPRAZOLE [Concomitant]
     Active Substance: PANTOPRAZOLE
  18. METOCLOPRAMIDE HYDROCHLORIDE [Concomitant]
     Active Substance: METOCLOPRAMIDE HYDROCHLORIDE

REACTIONS (27)
  - Pain [Not Recovered/Not Resolved]
  - Neoplasm progression [Not Recovered/Not Resolved]
  - Abdominal pain [Not Recovered/Not Resolved]
  - Hepatomegaly [Not Recovered/Not Resolved]
  - Flank pain [Recovering/Resolving]
  - Nausea [Not Recovered/Not Resolved]
  - Fatigue [Not Recovered/Not Resolved]
  - Wrist fracture [Recovering/Resolving]
  - Fall [Recovering/Resolving]
  - Malaise [Not Recovered/Not Resolved]
  - Lethargy [Unknown]
  - Nausea [Recovered/Resolved]
  - Nausea [Recovered/Resolved]
  - Diarrhoea [Unknown]
  - Oropharyngeal pain [Recovering/Resolving]
  - Dyspnoea [Not Recovered/Not Resolved]
  - Chronic obstructive pulmonary disease [Not Recovered/Not Resolved]
  - Nausea [Not Recovered/Not Resolved]
  - Injection site pain [Unknown]
  - Pain in extremity [Not Recovered/Not Resolved]
  - Headache [Not Recovered/Not Resolved]
  - Abdominal distension [Not Recovered/Not Resolved]
  - Nausea [Not Recovered/Not Resolved]
  - Fatigue [Not Recovered/Not Resolved]
  - Pruritus [Recovered/Resolved]
  - Fatigue [Unknown]
  - Nausea [Unknown]

NARRATIVE: CASE EVENT DATE: 20220101
